FAERS Safety Report 23293274 (Version 1)
Quarter: 2023Q4

REPORT INFORMATION
  Report Type: Spontaneous
  Country: US (occurrence: US)
  Receive Date: 20231213
  Receipt Date: 20231213
  Transmission Date: 20240109
  Serious: No
  Sender: FDA-Public Use
  Company Number: US-NOVOPROD-1045273

PATIENT
  Sex: Female

DRUGS (1)
  1. LEVEMIR [Suspect]
     Active Substance: INSULIN DETEMIR
     Indication: Product used for unknown indication
     Dosage: 40 UNITS
     Route: 058
     Dates: start: 20230303

REACTIONS (4)
  - Arthritis [Unknown]
  - Injection site mass [Unknown]
  - Blood glucose increased [Unknown]
  - Device issue [Unknown]
